FAERS Safety Report 15284963 (Version 9)
Quarter: 2019Q1

REPORT INFORMATION
  Report Type: Spontaneous
  Country: US (occurrence: US)
  Receive Date: 20180816
  Receipt Date: 20190329
  Transmission Date: 20190417
  Serious: Yes (Other)
  Sender: FDA-Public Use
  Company Number: US-PFIZER INC-2018330592

PATIENT
  Age: 52 Year
  Sex: Female

DRUGS (18)
  1. PREMPRO [Suspect]
     Active Substance: ESTROGENS, CONJUGATED\MEDROXYPROGESTERONE ACETATE
     Dosage: 1 DF, 1X/DAY
     Route: 048
     Dates: start: 20080701
  2. PREMPRO [Suspect]
     Active Substance: ESTROGENS, CONJUGATED\MEDROXYPROGESTERONE ACETATE
     Dosage: 1 DF, DAILY
     Route: 048
     Dates: start: 2009
  3. FISH OIL [Concomitant]
     Active Substance: FISH OIL
     Dosage: 1 DF, DAILY
     Route: 048
     Dates: end: 20170921
  4. PREMPRO [Suspect]
     Active Substance: ESTROGENS, CONJUGATED\MEDROXYPROGESTERONE ACETATE
     Indication: HORMONE THERAPY
     Dosage: 0.625/2.5 MG, 1X/DAY
     Dates: start: 19980101
  5. PREMPRO [Suspect]
     Active Substance: ESTROGENS, CONJUGATED\MEDROXYPROGESTERONE ACETATE
     Dosage: 1 DF, 1X/DAY
     Route: 048
     Dates: start: 20100616
  6. VITAMIN D3 [Concomitant]
     Active Substance: CHOLECALCIFEROL
     Dosage: 1 DF, DAILY
     Route: 048
  7. ACYCLOVIR. [Concomitant]
     Active Substance: ACYCLOVIR
     Dosage: 2 DF (CAPSULES), 2X/DAY
     Route: 048
     Dates: start: 20111229, end: 20121222
  8. ZOVIRAX [Concomitant]
     Active Substance: ACYCLOVIR
     Dosage: 2 DF, 2X/DAY
     Route: 048
     Dates: end: 20170703
  9. ZOCOR [Concomitant]
     Active Substance: SIMVASTATIN
     Dosage: 20 MG, 1X/DAY (AT BEDTIME)
     Dates: start: 20060315
  10. PREMARIN [Suspect]
     Active Substance: ESTROGENS, CONJUGATED
     Dosage: 0.3 MG, 1X/DAY
     Route: 048
     Dates: start: 20030806
  11. PREMARIN [Suspect]
     Active Substance: ESTROGENS, CONJUGATED
     Dosage: 0.3 MG, 1X/DAY
     Route: 048
     Dates: start: 20050629
  12. PREMARIN [Suspect]
     Active Substance: ESTROGENS, CONJUGATED
     Dosage: UNK (FOR SEVERAL YEARS)
     Dates: start: 2006
  13. ACYCLOVIR. [Concomitant]
     Active Substance: ACYCLOVIR
     Dosage: 2 DF (CAPSULES), 2X/DAY
     Route: 048
     Dates: start: 20120904, end: 20121202
  14. PREMPRO [Suspect]
     Active Substance: ESTROGENS, CONJUGATED\MEDROXYPROGESTERONE ACETATE
     Dosage: 1 DF, 1X/DAY
     Route: 048
     Dates: start: 20060313
  15. PREMPRO [Suspect]
     Active Substance: ESTROGENS, CONJUGATED\MEDROXYPROGESTERONE ACETATE
     Dosage: 1 DF, 1X/DAY
     Route: 048
     Dates: start: 20121108, end: 20131102
  16. ALEVE [Concomitant]
     Active Substance: NAPROXEN SODIUM
     Indication: ARTHRITIS
     Dosage: UNK, FOR 6 WEEKS
     Dates: start: 2014
  17. PREMPRO [Suspect]
     Active Substance: ESTROGENS, CONJUGATED\MEDROXYPROGESTERONE ACETATE
     Dosage: 1 DF, 1X/DAY
     Route: 048
     Dates: start: 20111229, end: 20121222
  18. ACYCLOVIR. [Concomitant]
     Active Substance: ACYCLOVIR
     Dosage: 400 MG, 2X/DAY
     Route: 048

REACTIONS (12)
  - Folliculitis [Recovered/Resolved]
  - Lipoma [Unknown]
  - Breast cancer stage IV [Unknown]
  - Wound [Recovered/Resolved]
  - Blister [Unknown]
  - Cognitive disorder [Unknown]
  - Amnesia [Unknown]
  - Alopecia [Unknown]
  - Confusional state [Unknown]
  - Seborrhoeic keratosis [Unknown]
  - Breast cancer metastatic [Unknown]
  - Conjunctivitis [Recovered/Resolved]

NARRATIVE: CASE EVENT DATE: 19991028
